FAERS Safety Report 15157006 (Version 1)
Quarter: 2018Q3

REPORT INFORMATION
  Report Type: Spontaneous
  Country: IT (occurrence: IT)
  Receive Date: 20180718
  Receipt Date: 20180718
  Transmission Date: 20181010
  Serious: Yes (Hospitalization)
  Sender: FDA-Public Use
  Company Number: IT-TEVA-2018-IT-927379

PATIENT
  Age: 8 Year
  Sex: Male
  Weight: 30 kg

DRUGS (6)
  1. DECADRON [Concomitant]
     Active Substance: DEXAMETHASONE
     Route: 042
  2. NORMIX [Concomitant]
     Active Substance: RIFAXIMIN
     Route: 048
  3. FLEBOCORTID RICHTER [Concomitant]
     Route: 042
  4. VINCRISTINE [Suspect]
     Active Substance: VINCRISTINE
     Indication: LEUKAEMIA RECURRENT
     Route: 042
     Dates: start: 20170613
  5. PEGASPARGASE [Suspect]
     Active Substance: PEGASPARGASE
     Indication: LEUKAEMIA RECURRENT
     Route: 042
     Dates: start: 20170613
  6. CANCIDAS [Concomitant]
     Active Substance: CASPOFUNGIN ACETATE
     Route: 042

REACTIONS (1)
  - Protein total decreased [Recovered/Resolved]

NARRATIVE: CASE EVENT DATE: 20170618
